FAERS Safety Report 5836080-6 (Version None)
Quarter: 2008Q3

REPORT INFORMATION
  Report Type: 
  Country: None (occurrence: None)
  Receive Date: 20080806
  Receipt Date: 20080731
  Transmission Date: 20090109
  Serious: Yes (Hospitalization)
  Sender: FDA-Public Use
  Company Number: CH-MERCK-0807CHE00007

PATIENT
  Age: 78 Year
  Sex: Female

DRUGS (7)
  1. FOSAMAX [Suspect]
     Indication: OSTEOPOROSIS POSTMENOPAUSAL
     Route: 048
     Dates: start: 20030101
  2. RISEDRONATE SODIUM [Suspect]
     Indication: OSTEOPOROSIS POSTMENOPAUSAL
     Route: 048
     Dates: end: 20030101
  3. ESOMEPRAZOLE MAGNESIUM [Suspect]
     Indication: GASTROOESOPHAGEAL REFLUX DISEASE
     Route: 048
  4. CALCIUM CARBONATE AND CHOLECALCIFEROL [Concomitant]
     Indication: OSTEOPOROSIS POSTMENOPAUSAL
     Route: 048
  5. CANDESARTAN CILEXETIL [Concomitant]
     Indication: ESSENTIAL HYPERTENSION
     Route: 048
  6. IRON SUCROSE [Concomitant]
     Indication: HAEMORRHAGIC ANAEMIA
     Route: 048
     Dates: start: 20070301, end: 20070601
  7. FOLIC ACID [Concomitant]
     Indication: HAEMORRHAGIC ANAEMIA
     Route: 048
     Dates: start: 20070301, end: 20070601

REACTIONS (2)
  - FEMUR FRACTURE [None]
  - IMPAIRED HEALING [None]
